FAERS Safety Report 5132254-0 (Version None)
Quarter: 2006Q4

REPORT INFORMATION
  Report Type: 
  Country: None (occurrence: None)
  Receive Date: 20061017
  Receipt Date: 20061004
  Transmission Date: 20070319
  Serious: Yes (Hospitalization)
  Sender: FDA-Public Use
  Company Number: 2006-02565

PATIENT
  Age: 63 Year
  Sex: Female
  Weight: 71.4 kg

DRUGS (9)
  1. VELCADE [Suspect]
     Indication: GASTRIC CANCER
     Dosage: 1.30 MG/M2, IV BOLUS
     Route: 040
     Dates: start: 20060901, end: 20060911
  2. IRINOTECAN(IRINOTECAN)VIAL [Suspect]
     Indication: GASTRIC CANCER
     Dosage: 125.00 MG/M2, INTRAVENOUS
     Route: 042
     Dates: start: 20060901, end: 20060908
  3. ADVAIR (FLUTICASONE PROPIONATE, SALMETEROL XINAFOATE)INHALER [Concomitant]
  4. ... [Concomitant]
  5. ADVIL [Concomitant]
  6. MULTIVITAMINS (ERGOCALCIFEROL, ASCORBIC, ACID, PANTHENOL, NICOTINAMIDE [Concomitant]
  7. COMPAZINE [Concomitant]
  8. PROCRIT [Concomitant]
  9. ZOFRAN [Concomitant]

REACTIONS (5)
  - CONSTIPATION [None]
  - HAEMOGLOBIN DECREASED [None]
  - LIVER ABSCESS [None]
  - PLATELET COUNT INCREASED [None]
  - PROCTALGIA [None]
